FAERS Safety Report 7893334-X (Version None)
Quarter: 2011Q4

REPORT INFORMATION
  Report Type: 
  Country: None (occurrence: None)
  Receive Date: 20111104
  Receipt Date: 20111102
  Transmission Date: 20120403
  Serious: Yes (Hospitalization)
  Sender: FDA-Public Use
  Company Number: US-VERTEX PHARMACEUTICALS INC.-AE-2011-001724

PATIENT
  Sex: Female

DRUGS (9)
  1. PEGASYS [Concomitant]
     Indication: HEPATITIS C
     Route: 058
     Dates: start: 20110801, end: 20110916
  2. RIBAVIRIN [Concomitant]
     Indication: HEPATITIS C
     Route: 048
     Dates: start: 20110801, end: 20110916
  3. GLIMEPIRIDE [Concomitant]
  4. INCIVEK [Suspect]
     Indication: HEPATITIS C
     Route: 048
     Dates: start: 20110801, end: 20110916
  5. VITAMIN E [Concomitant]
  6. VESICARE [Concomitant]
  7. KENALOG [Concomitant]
  8. JANUMET [Concomitant]
  9. LISINOPRIL [Concomitant]

REACTIONS (1)
  - PANCYTOPENIA [None]
